FAERS Safety Report 5823719-4 (Version None)
Quarter: 2008Q3

REPORT INFORMATION
  Report Type: 
  Country: None (occurrence: None)
  Receive Date: 20080725
  Receipt Date: 20080718
  Transmission Date: 20090109
  Serious: Yes (Other)
  Sender: FDA-Public Use
  Company Number: DE-ALLERGAN-0805219US

PATIENT
  Sex: Female
  Weight: 18 kg

DRUGS (4)
  1. BOTOX [Suspect]
     Indication: CEREBRAL PALSY
     Dosage: 600 UNITS, SINGLE
     Route: 030
     Dates: start: 20080411, end: 20080411
  2. BOTOX [Suspect]
     Dosage: UNK, SINGLE
     Route: 030
     Dates: start: 20080411, end: 20080411
  3. BOTOX [Suspect]
     Dosage: UNK, SINGLE
     Route: 030
     Dates: start: 20080411, end: 20080411
  4. BOTOX [Suspect]
     Dosage: 165 UNITS, SINGLE
     Route: 030

REACTIONS (3)
  - DISTRACTIBILITY [None]
  - EYELID PTOSIS [None]
  - UNRESPONSIVE TO STIMULI [None]
